FAERS Safety Report 9442336 (Version 1)
Quarter: 2013Q3

REPORT INFORMATION
  Report Type: Spontaneous
  Country: US (occurrence: US)
  Receive Date: 20130806
  Receipt Date: 20130806
  Transmission Date: 20140515
  Serious: No
  Sender: FDA-Public Use
  Company Number: US-009507513-1308USA000124

PATIENT
  Age: 46 Year
  Sex: Female

DRUGS (5)
  1. SAPHRIS [Suspect]
     Indication: BIPOLAR DISORDER
     Dosage: 20 MG, QD
     Route: 060
     Dates: start: 20130725
  2. SAPHRIS [Suspect]
     Indication: ANXIETY
  3. KLONOPIN [Concomitant]
  4. PREMARIN [Concomitant]
  5. PAXIL [Concomitant]

REACTIONS (3)
  - Ageusia [Not Recovered/Not Resolved]
  - Hypoaesthesia oral [Recovered/Resolved]
  - Inappropriate schedule of drug administration [Unknown]
